FAERS Safety Report 9002930 (Version 2)
Quarter: 2013Q1

REPORT INFORMATION
  Report Type: Spontaneous
  Country: NL (occurrence: None)
  Receive Date: 20121226
  Receipt Date: 20130124
  Transmission Date: 20140127
  Serious: Yes (Death, Other)
  Sender: FDA-Public Use
  Company Number: 2012304347

PATIENT
  Age: 65 Year
  Sex: Female
  Weight: 50 kg

DRUGS (3)
  1. FRAGMIN [Suspect]
     Indication: THROMBOSIS PROPHYLAXIS
     Dosage: 7500 IU, 2X/DAY
     Dates: start: 20120512, end: 20120514
  2. SELOKEEN (METOPROLOL TARTRATE) [Concomitant]
  3. RENVELA (SEVELAMER CARBONATE) [Concomitant]

REACTIONS (9)
  - Thrombosis [None]
  - Arterial haemorrhage [None]
  - Arterial rupture [None]
  - Haematoma [None]
  - Cyanosis [None]
  - Pain [None]
  - Iatrogenic injury [None]
  - Incorrect dose administered [None]
  - Inappropriate schedule of drug administration [None]
